FAERS Safety Report 5359596-8 (Version None)
Quarter: 2007Q2

REPORT INFORMATION
  Report Type: 
  Country: None (occurrence: None)
  Receive Date: 20070530
  Receipt Date: 20061020
  Transmission Date: 20071010
  Serious: Yes (Hospitalization)
  Sender: FDA-Public Use
  Company Number: US200606001984

PATIENT
  Age: 40 Year
  Sex: Male
  Weight: 98.4 kg

DRUGS (2)
  1. ZYPREXA [Suspect]
     Dosage: 10 MG
     Dates: start: 19991101, end: 20051201
  2. LITHIUM CARBONATE [Concomitant]

REACTIONS (4)
  - BLOOD PRESSURE ABNORMAL [None]
  - DIABETES MELLITUS [None]
  - DIZZINESS [None]
  - VISION BLURRED [None]
